FAERS Safety Report 4345428-3 (Version None)
Quarter: 2004Q2

REPORT INFORMATION
  Report Type: 
  Country: None (occurrence: None)
  Receive Date: 20040421
  Receipt Date: 20040408
  Transmission Date: 20050107
  Serious: Yes (Death, Hospitalization)
  Sender: FDA-Public Use
  Company Number: 2004208831JP

PATIENT
  Age: 57 Year
  Sex: Male

DRUGS (5)
  1. ADRIACIN (DOXORUBICIN HYDROCHLORIDE)POWDER, STERILE [Suspect]
     Indication: ADULT T-CELL LYMPHOMA/LEUKAEMIA
     Dosage: 80 MG, QD, IV
     Route: 042
     Dates: start: 19990526, end: 19990526
  2. CYCLOPHOSPHAMIDE [Suspect]
     Dosage: 1300 MG, QD, IV
     Route: 042
  3. VINCRISTINE [Suspect]
     Dosage: 2 MG, QD, IV
     Route: 042
  4. DELTA-CORTEF [Suspect]
     Indication: ADULT T-CELL LYMPHOMA/LEUKAEMIA
     Dosage: 10 MG, QD, ORAL
     Route: 048
     Dates: start: 19990428, end: 19991021
  5. ETOPOSIDE [Suspect]
     Indication: ADULT T-CELL LYMPHOMA/LEUKAEMIA
     Dosage: 50 MG, QD, ORAL
     Route: 048
     Dates: start: 19990428, end: 19991021

REACTIONS (6)
  - HAEMODIALYSIS [None]
  - HEPATIC ENCEPHALOPATHY [None]
  - HEPATITIS B [None]
  - HEPATITIS FULMINANT [None]
  - HEPATOCELLULAR DAMAGE [None]
  - RASH ERYTHEMATOUS [None]
